FAERS Safety Report 10146086 (Version 2)
Quarter: 2014Q2

REPORT INFORMATION
  Report Type: Spontaneous
  Country: IT (occurrence: IT)
  Receive Date: 20140501
  Receipt Date: 20140610
  Transmission Date: 20141212
  Serious: Yes (Hospitalization)
  Sender: FDA-Public Use
  Company Number: IT-TEVA-477511ISR

PATIENT
  Age: 16 Year
  Sex: Female

DRUGS (2)
  1. SERTRALINE [Suspect]
     Indication: DRUG ABUSE
     Dosage: 30 DF TOTAL
     Route: 048
     Dates: start: 20130708, end: 20130708
  2. ALPRAZOLAM [Suspect]
     Indication: DRUG ABUSE
     Dosage: 15 DF TOTAL
     Route: 048
     Dates: start: 20130708, end: 20130708

REACTIONS (3)
  - Tachycardia [Unknown]
  - Bradyphrenia [Unknown]
  - Drug abuse [Unknown]
